FAERS Safety Report 9454857 (Version 1)
Quarter: 2013Q3

REPORT INFORMATION
  Report Type: Spontaneous
  Country: JP (occurrence: JP)
  Receive Date: 20130813
  Receipt Date: 20130813
  Transmission Date: 20140515
  Serious: Yes (Hospitalization, Other)
  Sender: FDA-Public Use
  Company Number: JP-SP-2013-08445

PATIENT
  Age: 69 Year
  Sex: Male

DRUGS (2)
  1. IMMUCYST [Suspect]
     Indication: BLADDER CANCER RECURRENT
     Dosage: NOT REPORTED
     Route: 043
  2. IMMUNOBLADDER [Suspect]
     Indication: PRODUCT USED FOR UNKNOWN INDICATION
     Dosage: NOT REPORTED
     Route: 065

REACTIONS (3)
  - Epididymitis tuberculous [Recovered/Resolved]
  - Epididymitis [Recovered/Resolved]
  - Scrotal swelling [Recovered/Resolved]
